FAERS Safety Report 18980779 (Version 1)
Quarter: 2021Q1

REPORT INFORMATION
  Report Type: Report from Study
  Country: AU (occurrence: AU)
  Receive Date: 20210308
  Receipt Date: 20210308
  Transmission Date: 20210420
  Serious: Yes (Other)
  Sender: FDA-Public Use
  Company Number: AU-TOLMAR, INC.-21AU024963

PATIENT
  Sex: Male

DRUGS (1)
  1. ELIGARD [Suspect]
     Active Substance: LEUPROLIDE ACETATE
     Indication: PROSTATE CANCER
     Dosage: 45 MG, Q 6 MONTH
     Route: 058
     Dates: start: 20200802

REACTIONS (2)
  - Cancer pain [Unknown]
  - Bone cancer metastatic [Unknown]
